FAERS Safety Report 4499103-5 (Version None)
Quarter: 2004Q4

REPORT INFORMATION
  Report Type: 
  Country: None (occurrence: None)
  Receive Date: 20041111
  Receipt Date: 20041006
  Transmission Date: 20050328
  Serious: Yes (Death, Life-Threatening, Disabling)
  Sender: FDA-Public Use
  Company Number: US-MERCK-0410USA00900

PATIENT
  Age: 72 Year
  Sex: Male

DRUGS (5)
  1. VIOXX [Suspect]
     Indication: MONARTHRITIS
     Route: 048
     Dates: start: 20020607, end: 20040529
  2. PRAVACHOL [Concomitant]
     Route: 065
  3. LOPRESSOR [Concomitant]
     Route: 065
  4. ASPIRIN [Concomitant]
     Route: 065
  5. VITAMIN E [Concomitant]
     Route: 065

REACTIONS (1)
  - MYOCARDIAL INFARCTION [None]
